FAERS Safety Report 8146285-X (Version None)
Quarter: 2012Q1

REPORT INFORMATION
  Report Type: 
  Country: None (occurrence: None)
  Receive Date: 20120217
  Receipt Date: 20111214
  Transmission Date: 20120608
  Serious: No
  Sender: FDA-Public Use
  Company Number: US-ABBOTT-11P-163-0884541-00

PATIENT
  Sex: Male
  Weight: 115.77 kg

DRUGS (8)
  1. TOPROL-XL [Concomitant]
     Indication: HYPERTENSION
  2. SIMCOR [Suspect]
     Indication: ARTERIOSCLEROSIS
     Dosage: 500/20
     Dates: start: 20100101
  3. ASPIRIN [Concomitant]
     Indication: CARDIOVASCULAR EVENT PROPHYLAXIS
  4. HYZAAR [Concomitant]
     Indication: HYPERTENSION
  5. RANITIDINE [Concomitant]
     Indication: GASTROOESOPHAGEAL REFLUX DISEASE
  6. NORVASC [Concomitant]
     Indication: HYPERTENSION
  7. FISH OIL [Concomitant]
     Indication: MEDICAL DIET
  8. PLAVIX [Concomitant]
     Indication: THROMBOSIS PROPHYLAXIS

REACTIONS (3)
  - FLUSHING [None]
  - PRURITUS [None]
  - MACULE [None]
